FAERS Safety Report 8394134-7 (Version None)
Quarter: 2012Q2

REPORT INFORMATION
  Report Type: 
  Country: None (occurrence: None)
  Receive Date: 20120530
  Receipt Date: 20120522
  Transmission Date: 20120825
  Serious: Yes (Death)
  Sender: FDA-Public Use
  Company Number: US-JNJFOC-20120509715

PATIENT

DRUGS (20)
  1. PEGFILGRASTIM [Concomitant]
     Route: 065
  2. DOXORUBICIN HCL [Suspect]
     Route: 042
  3. GEMCITABINE [Suspect]
     Route: 042
  4. DOXORUBICIN HCL [Suspect]
     Route: 042
  5. GEMCITABINE [Suspect]
     Route: 042
  6. DOXORUBICIN HCL [Suspect]
     Route: 042
  7. GEMCITABINE [Suspect]
     Indication: RENAL CELL CARCINOMA
     Route: 042
  8. GEMCITABINE [Suspect]
     Route: 042
  9. GEMCITABINE [Suspect]
     Route: 042
  10. GEMCITABINE [Suspect]
     Route: 042
  11. DOXORUBICIN HCL [Suspect]
     Route: 042
  12. DOXORUBICIN HCL [Suspect]
     Route: 042
  13. DOXORUBICIN HCL [Suspect]
     Route: 042
  14. DOXORUBICIN HCL [Suspect]
     Route: 042
  15. GEMCITABINE [Suspect]
     Route: 042
  16. GEMCITABINE [Suspect]
     Route: 042
  17. NEUPOGEN [Concomitant]
     Route: 065
  18. DOXORUBICIN HCL [Suspect]
     Indication: RENAL CELL CARCINOMA
     Route: 042
  19. DOXORUBICIN HCL [Suspect]
     Route: 042
  20. GEMCITABINE [Suspect]
     Route: 042

REACTIONS (3)
  - OFF LABEL USE [None]
  - CARDIAC DISORDER [None]
  - MULTI-ORGAN FAILURE [None]
